FAERS Safety Report 4571516-2 (Version None)
Quarter: 2005Q1

REPORT INFORMATION
  Report Type: 
  Country: None (occurrence: None)
  Receive Date: 20050126
  Receipt Date: 20040831
  Transmission Date: 20050727
  Serious: Yes (Death, Hospitalization)
  Sender: FDA-Public Use
  Company Number: A01200404268

PATIENT
  Age: 79 Year
  Sex: Female

DRUGS (6)
  1. PLAVIX [Suspect]
     Indication: ANGINA UNSTABLE
     Dosage: 75 MG OD ORAL
     Route: 048
     Dates: start: 20040715, end: 20040831
  2. DIURAL - (FUROSEMIDE) - 40 MG [Suspect]
     Dosage: 40 MG QD ORAL/ A FEW MONTHS
     Route: 048
     Dates: start: 20040101, end: 20041105
  3. SELO-ZOK (METOPROLOL SUCCINATE) [Concomitant]
  4. ALBYL-E (ACETYLSALICYLIC ACID) [Concomitant]
  5. ZOCOR [Concomitant]
  6. IMDUR [Concomitant]

REACTIONS (7)
  - APLASTIC ANAEMIA [None]
  - CHILLS [None]
  - LUNG INFILTRATION [None]
  - MYOCARDIAL INFARCTION [None]
  - PANCYTOPENIA [None]
  - PLEURAL EFFUSION [None]
  - PYREXIA [None]
